FAERS Safety Report 18458063 (Version 2)
Quarter: 2021Q1

REPORT INFORMATION
  Report Type: Spontaneous
  Country: US (occurrence: US)
  Receive Date: 20201103
  Receipt Date: 20210312
  Transmission Date: 20210419
  Serious: No
  Sender: FDA-Public Use
  Company Number: US-FARMAPROD-202009-1177

PATIENT
  Sex: Female
  Weight: 54.48 kg

DRUGS (10)
  1. OXERVATE [Suspect]
     Active Substance: CENEGERMIN-BKBJ
     Indication: NEUROTROPHIC KERATOPATHY
     Route: 047
     Dates: start: 20200819, end: 20201003
  2. ZETIA [Concomitant]
     Active Substance: EZETIMIBE
  3. MOXIFLOXACIN. [Concomitant]
     Active Substance: MOXIFLOXACIN
  4. ARTIFICIAL TEAR [Concomitant]
     Active Substance: LANOLIN\MINERAL OIL\PETROLATUM
     Dosage: 0.1% ? 0.3%
  5. KLONOPIN [Concomitant]
     Active Substance: CLONAZEPAM
  6. MIRTAZAPINE. [Concomitant]
     Active Substance: MIRTAZAPINE
  7. REMERON [Concomitant]
     Active Substance: MIRTAZAPINE
  8. METOPROLOL SUCCINATE. [Concomitant]
     Active Substance: METOPROLOL SUCCINATE
  9. LEXAPRO [Concomitant]
     Active Substance: ESCITALOPRAM OXALATE
  10. ELIQUIS [Concomitant]
     Active Substance: APIXABAN

REACTIONS (6)
  - Eye irritation [Not Recovered/Not Resolved]
  - Ocular hyperaemia [Unknown]
  - Photophobia [Not Recovered/Not Resolved]
  - Eyelid pain [Not Recovered/Not Resolved]
  - Lacrimation increased [Unknown]
  - Eye pain [Not Recovered/Not Resolved]
